FAERS Safety Report 25736898 (Version 1)
Quarter: 2025Q3

REPORT INFORMATION
  Report Type: Spontaneous
  Country: US (occurrence: None)
  Receive Date: 20250828
  Receipt Date: 20250828
  Transmission Date: 20251021
  Serious: Yes (Hospitalization)
  Sender: FDA-CTU
  Company Number: None

PATIENT
  Age: 52 Year
  Sex: Female
  Weight: 82.8 kg

DRUGS (2)
  1. INFLIXIMAB [Suspect]
     Active Substance: INFLIXIMAB
     Indication: Cardiac sarcoidosis
     Route: 041
     Dates: start: 20250806
  2. SODIUM CHLORIDE [Concomitant]
     Active Substance: SODIUM CHLORIDE
     Dates: start: 20250806, end: 20250820

REACTIONS (7)
  - Rhinorrhoea [None]
  - Cough [None]
  - Nonspecific reaction [None]
  - Fatigue [None]
  - Myalgia [None]
  - Sputum discoloured [None]
  - Pneumonia [None]

NARRATIVE: CASE EVENT DATE: 20250828
